FAERS Safety Report 6807594-7 (Version None)
Quarter: 2010Q2

REPORT INFORMATION
  Report Type: 
  Country: None (occurrence: None)
  Receive Date: 20100629
  Receipt Date: 20090422
  Transmission Date: 20101027
  Serious: No
  Sender: FDA-Public Use
  Company Number: US-PFIZER INC-2008085946

PATIENT
  Age: 46 Year
  Sex: Male

DRUGS (22)
  1. XANAX [Suspect]
  2. LEXAPRO [Interacting]
     Indication: DEPRESSION
     Dosage: 2.5 MG, 1X/DAY
     Route: 048
     Dates: start: 20080801
  3. LEXAPRO [Interacting]
     Indication: OBSESSIVE-COMPULSIVE DISORDER
     Dosage: 1.5 MG, 1X/DAY
     Route: 048
  4. LEXAPRO [Interacting]
     Indication: ANXIETY
     Dosage: 2 MG, 1X/DAY
     Route: 048
  5. LEXAPRO [Interacting]
     Dosage: 3 MG, 1X/DAY
     Route: 048
  6. LEXAPRO [Interacting]
     Dosage: 3.5 MG, 1X/DAY
     Route: 048
  7. LEXAPRO [Interacting]
     Dosage: 4 MG, 1X/DAY
     Route: 048
  8. LEXAPRO [Interacting]
     Dosage: 4.5 MG, 1X/DAY
     Route: 048
  9. LEXAPRO [Interacting]
     Dosage: 5 MG, 1X/DAY
     Route: 048
  10. VALIUM [Interacting]
     Indication: ANXIETY
     Dosage: UNK
  11. UROXATRAL [Concomitant]
     Indication: URINARY TRACT INFECTION
     Dosage: UNK
  12. BENTYL [Concomitant]
     Indication: COLITIS
     Dosage: UNK
  13. BENTYL [Concomitant]
     Indication: IRRITABLE BOWEL SYNDROME
  14. LIBRAX [Concomitant]
     Indication: COLITIS
  15. LIBRAX [Concomitant]
     Indication: IRRITABLE BOWEL SYNDROME
  16. LEVBID [Concomitant]
     Indication: COLITIS
     Dosage: UNK
  17. LEVBID [Concomitant]
     Indication: IRRITABLE BOWEL SYNDROME
  18. MESALAZINE [Concomitant]
     Indication: IRRITABLE BOWEL SYNDROME
     Dosage: UNK
  19. MESALAZINE [Concomitant]
     Indication: COLITIS
  20. ULTRAM [Concomitant]
     Indication: ABDOMINAL PAIN UPPER
     Dosage: UNK
  21. AMBIEN [Concomitant]
     Indication: INSOMNIA
     Dosage: UNK
  22. ALPRAZOLAM [Concomitant]
     Indication: ANXIETY
     Dosage: UNK

REACTIONS (18)
  - AGITATION [None]
  - ANXIETY [None]
  - APATHY [None]
  - CONSTIPATION [None]
  - DEPRESSION [None]
  - DIARRHOEA [None]
  - DRUG INTERACTION [None]
  - FATIGUE [None]
  - HYPOAESTHESIA [None]
  - IMPATIENCE [None]
  - INCREASED APPETITE [None]
  - INSOMNIA [None]
  - IRRITABILITY [None]
  - RESTLESSNESS [None]
  - RHINORRHOEA [None]
  - SEXUAL DYSFUNCTION [None]
  - URINARY TRACT INFECTION [None]
  - WEIGHT INCREASED [None]
